FAERS Safety Report 12463361 (Version 2)
Quarter: 2016Q3

REPORT INFORMATION
  Report Type: Spontaneous
  Country: CA (occurrence: CA)
  Receive Date: 20160614
  Receipt Date: 20160702
  Transmission Date: 20161109
  Serious: Yes (Hospitalization)
  Sender: FDA-Public Use
  Company Number: CA-ACCORD-041412

PATIENT
  Age: 71 Year
  Sex: Female
  Weight: 68.4 kg

DRUGS (17)
  1. HYDROXYZINE [Concomitant]
     Active Substance: HYDROXYZINE\HYDROXYZINE HYDROCHLORIDE
  2. IBUPROFEN. [Concomitant]
     Active Substance: IBUPROFEN
  3. AMLODIPINE [Suspect]
     Active Substance: AMLODIPINE BESYLATE
     Indication: HYPERTENSION
  4. METFORMIN [Concomitant]
     Active Substance: METFORMIN HYDROCHLORIDE
  5. MONTELUKAST [Concomitant]
     Active Substance: MONTELUKAST SODIUM
  6. CITALOPRAM [Concomitant]
     Active Substance: CITALOPRAM HYDROBROMIDE
  7. FESOTERODINE [Suspect]
     Active Substance: FESOTERODINE
     Indication: HYPERTONIC BLADDER
  8. RABEPRAZOLE/RABEPRAZOLE SODIUM [Concomitant]
  9. BUPROPION/BUPROPION HYDROCHLORIDE [Concomitant]
  10. POTASSIUM CITRATE. [Concomitant]
     Active Substance: POTASSIUM CITRATE
  11. ARIPIPRAZOLE. [Concomitant]
     Active Substance: ARIPIPRAZOLE
  12. ANETHOLE [Suspect]
     Active Substance: ANETHOLE
     Indication: DRY MOUTH
  13. FENOFIBRATE. [Concomitant]
     Active Substance: FENOFIBRATE
  14. CLOPIDOGREL [Concomitant]
     Active Substance: CLOPIDOGREL BISULFATE
  15. FUROSEMIDE. [Suspect]
     Active Substance: FUROSEMIDE
     Indication: OEDEMA PERIPHERAL
  16. SPIRONOLACTONE. [Suspect]
     Active Substance: SPIRONOLACTONE
     Indication: OEDEMA PERIPHERAL
  17. LEVOTHYROXINE/LEVOTHYROXINE SODIUM [Concomitant]

REACTIONS (6)
  - Multiple fractures [Unknown]
  - Balance disorder [Unknown]
  - Hypertonic bladder [Recovering/Resolving]
  - Fall [Unknown]
  - Oedema peripheral [Recovered/Resolved]
  - Dry mouth [Recovered/Resolved]
